FAERS Safety Report 8848587 (Version 2)
Quarter: 2012Q4

REPORT INFORMATION
  Report Type: 
  Country: GB (occurrence: GB)
  Receive Date: 20121018
  Receipt Date: 20121112
  Transmission Date: 20130627
  Serious: Yes (Death)
  Sender: FDA-Public Use
  Company Number: GB-ROCHE-1144416

PATIENT
  Age: 68 Year
  Sex: Female
  Weight: 90.9 kg

DRUGS (10)
  1. TOCILIZUMAB [Suspect]
     Indication: RHEUMATOID ARTHRITIS
     Route: 042
     Dates: start: 20120816, end: 20120816
  2. ALENDRONATE [Concomitant]
     Route: 065
  3. CALCICHEW D3 [Concomitant]
     Route: 065
  4. FOLIC ACID [Concomitant]
     Route: 065
  5. LANSOPRAZOLE [Concomitant]
  6. METHOTREXATE SODIUM [Concomitant]
     Route: 058
  7. NABUMETONE [Concomitant]
     Route: 065
  8. PREDNISOLONE [Concomitant]
     Route: 065
  9. SALBUTAMOL [Concomitant]
     Route: 065
     Dates: start: 20120824
  10. SIMVASTATIN [Concomitant]
     Route: 065
     Dates: start: 20120824

REACTIONS (3)
  - Myocardial infarction [Fatal]
  - Chest pain [Not Recovered/Not Resolved]
  - Blood cholesterol increased [Unknown]
